FAERS Safety Report 15198470 (Version 1)
Quarter: 2018Q3

REPORT INFORMATION
  Report Type: Spontaneous
  Country: US (occurrence: US)
  Receive Date: 20180627
  Receipt Date: 20180627
  Transmission Date: 20181010
  Serious: Yes (Other)
  Sender: FDA-Public Use
  Company Number: None

PATIENT
  Age: 27 Year
  Sex: Male
  Weight: 58.5 kg

DRUGS (3)
  1. BUPRENORPHINE. [Suspect]
     Active Substance: BUPRENORPHINE
     Indication: DRUG DEPENDENCE
     Route: 048
     Dates: start: 20180101, end: 20180619
  2. NALOXONE [Suspect]
     Active Substance: NALOXONE
     Indication: DRUG DEPENDENCE
     Route: 048
     Dates: start: 20180101, end: 20180619
  3. BUPRENORPHINE?NALOXONE 8?2 MG [Concomitant]
     Dates: start: 20160223, end: 20180619

REACTIONS (4)
  - Therapy change [None]
  - Drug level increased [None]
  - Drug effect variable [None]
  - Drug level decreased [None]

NARRATIVE: CASE EVENT DATE: 20180621
